FAERS Safety Report 6504150-5 (Version None)
Quarter: 2009Q4

REPORT INFORMATION
  Report Type: 
  Country: None (occurrence: None)
  Receive Date: 20091217
  Receipt Date: 20091208
  Transmission Date: 20100525
  Serious: Yes (Death)
  Sender: FDA-Public Use
  Company Number: JP-WYE-H12609009

PATIENT
  Age: 87 Year
  Sex: Male
  Weight: 55 kg

DRUGS (4)
  1. ANCARON [Suspect]
     Indication: ATRIAL FIBRILLATION
     Route: 048
     Dates: start: 20071031
  2. DIGOXIN [Concomitant]
     Dosage: UNSPECIFIED
     Dates: start: 20071029, end: 20071029
  3. VASOLAN [Concomitant]
     Dosage: UNSPECIFIED
     Dates: start: 20071029, end: 20091029
  4. AMIODARONE HYDROCHLORIDE [Concomitant]
     Dosage: UNSPECIFIED
     Route: 042
     Dates: start: 20071030, end: 20071030

REACTIONS (1)
  - SUDDEN DEATH [None]
